FAERS Safety Report 20998670 (Version 1)
Quarter: 2022Q2

REPORT INFORMATION
  Report Type: Report from Study
  Country: AR (occurrence: AR)
  Receive Date: 20220623
  Receipt Date: 20220623
  Transmission Date: 20220721
  Serious: Yes (Other)
  Sender: FDA-Public Use
  Company Number: AR-Merck Healthcare KGaA-9329649

PATIENT
  Age: 57 Year
  Sex: Male

DRUGS (1)
  1. CETUXIMAB [Suspect]
     Active Substance: CETUXIMAB
     Indication: Colorectal cancer
     Dosage: 438 MG, WEEKLY (1/W)
     Route: 065
     Dates: start: 20211028

REACTIONS (4)
  - Viraemia [Recovering/Resolving]
  - Device related infection [Recovering/Resolving]
  - Immunodeficiency [Recovering/Resolving]
  - Weight decreased [Recovering/Resolving]

NARRATIVE: CASE EVENT DATE: 20220501
